FAERS Safety Report 10120670 (Version 1)
Quarter: 2014Q2

REPORT INFORMATION
  Report Type: Report from Study
  Country: PL (occurrence: PL)
  Receive Date: 20140425
  Receipt Date: 20140425
  Transmission Date: 20141212
  Serious: Yes (Hospitalization)
  Sender: FDA-Public Use
  Company Number: PL-ASTRAZENECA-2014SE26735

PATIENT
  Age: 57 Year
  Sex: Male

DRUGS (3)
  1. TICAGRELOR [Suspect]
     Indication: ACUTE CORONARY SYNDROME
     Route: 048
     Dates: start: 20131218
  2. STUDY PROCEDURE [Suspect]
     Indication: ACUTE CORONARY SYNDROME
  3. ASPIRIN [Suspect]
     Indication: ACUTE CORONARY SYNDROME
     Route: 048
     Dates: start: 20131218

REACTIONS (1)
  - Acute myocardial infarction [Recovered/Resolved]
